FAERS Safety Report 20320200 (Version 1)
Quarter: 2022Q1

REPORT INFORMATION
  Report Type: Spontaneous
  Country: FR (occurrence: FR)
  Receive Date: 20220111
  Receipt Date: 20220111
  Transmission Date: 20220423
  Serious: Yes (Hospitalization, Other)
  Sender: FDA-Public Use
  Company Number: FR-ALKEM LABORATORIES LIMITED-FR-ALKEM-2021-08464

PATIENT
  Age: 27 Year
  Sex: Male

DRUGS (1)
  1. PREGABALIN [Suspect]
     Active Substance: PREGABALIN
     Indication: Partial seizures
     Dosage: 2500 MILLIGRAM
     Route: 065

REACTIONS (8)
  - Drug use disorder [Unknown]
  - Hyperhidrosis [Unknown]
  - Headache [Unknown]
  - Decreased appetite [Unknown]
  - Insomnia [Unknown]
  - Nightmare [Unknown]
  - Dry mouth [Unknown]
  - Back pain [Unknown]
